FAERS Safety Report 8329285-6 (Version None)
Quarter: 2012Q2

REPORT INFORMATION
  Report Type: 
  Country: None (occurrence: None)
  Receive Date: 20120502
  Receipt Date: 20110518
  Transmission Date: 20120825
  Serious: Yes (Other)
  Sender: FDA-Public Use
  Company Number: US-ASTRAZENECA-2011SE11210

PATIENT
  Age: 82 Year
  Sex: Female
  Weight: 64.4 kg

DRUGS (7)
  1. NIFEDIPINE [Concomitant]
     Indication: HYPERTENSION
     Dosage: AT NIGHT
  2. LISINOPRIL [Concomitant]
     Indication: HYPERTENSION
     Dosage: DAILY
  3. TAMOXIFEN CITRATE [Suspect]
     Route: 048
     Dates: end: 20101201
  4. FASLODEX [Suspect]
     Indication: BREAST CANCER METASTATIC
     Route: 030
     Dates: start: 20110201
  5. SYNTHROID [Concomitant]
     Indication: THYROID DISORDER
  6. ATENOLOL [Concomitant]
     Indication: HYPERTENSION
     Dosage: AT NIGHT
  7. BLOOD THINNER PILLS [Concomitant]

REACTIONS (4)
  - INTERNATIONAL NORMALISED RATIO DECREASED [None]
  - THROMBOSIS [None]
  - LABORATORY TEST ABNORMAL [None]
  - BREAST CANCER RECURRENT [None]
